FAERS Safety Report 21385088 (Version 2)
Quarter: 2022Q4

REPORT INFORMATION
  Report Type: Spontaneous
  Country: DE (occurrence: DE)
  Receive Date: 20220928
  Receipt Date: 20221227
  Transmission Date: 20230112
  Serious: Yes (Hospitalization, Other)
  Sender: FDA-Public Use
  Company Number: DE-BRISTOL-MYERS SQUIBB COMPANY-2022-092848

PATIENT
  Age: 79 Year
  Sex: Male
  Weight: 183 kg

DRUGS (2)
  1. PEMBROLIZUMAB [Suspect]
     Active Substance: PEMBROLIZUMAB
     Indication: Product used for unknown indication
     Dosage: 200 MILLIGRAM, Q3W
     Route: 065
     Dates: start: 20200903, end: 20210826
  2. NIVOLUMAB [Suspect]
     Active Substance: NIVOLUMAB
     Indication: Tongue neoplasm malignant stage unspecified
     Dosage: 480 MILLIGRAM (MG), FREQ: EVERY 4 WEEKS
     Route: 065
     Dates: start: 202110, end: 20220407

REACTIONS (2)
  - Pemphigoid [Recovering/Resolving]
  - Hypertension [Unknown]

NARRATIVE: CASE EVENT DATE: 20220401
